FAERS Safety Report 5124561-2 (Version None)
Quarter: 2006Q3

REPORT INFORMATION
  Report Type: 
  Country: None (occurrence: None)
  Receive Date: 20060821
  Receipt Date: 20060606
  Transmission Date: 20061208
  Serious: No
  Sender: FDA-Public Use
  Company Number: TPA2006A00943

PATIENT
  Age: 31 Year
  Sex: Female
  Weight: 70.3075 kg

DRUGS (4)
  1. ROZEREM [Suspect]
     Indication: INSOMNIA
     Dosage: 8 MG, HS, PER ORAL
     Route: 048
     Dates: start: 20060503
  2. SEASONALE (ETHINYL-ESTRADIOL, LEVONORGESTREL) [Concomitant]
  3. MULTIVITAMIN [Concomitant]
  4. VITAMIN B-COMPLEX (PYRIDOXINE HYDROCHLORIDE, THIAMINE HYDRICHLORIDE, R [Concomitant]

REACTIONS (2)
  - DRUG INEFFECTIVE [None]
  - INITIAL INSOMNIA [None]
